FAERS Safety Report 9492766 (Version 1)
Quarter: 2013Q3

REPORT INFORMATION
  Report Type: Spontaneous
  Country: DE (occurrence: DE)
  Receive Date: 20130830
  Receipt Date: 20130830
  Transmission Date: 20140515
  Serious: Yes (Other)
  Sender: FDA-Public Use
  Company Number: DE-VIIV HEALTHCARE LIMITED-D0080947A

PATIENT
  Age: 48 Year
  Sex: Female

DRUGS (10)
  1. ZIDOVUDINE [Suspect]
     Indication: HIV INFECTION
     Route: 065
     Dates: start: 199808
  2. ZIAGEN [Suspect]
     Indication: HIV INFECTION
     Route: 065
  3. COMBIVIR [Suspect]
     Indication: HIV INFECTION
     Route: 048
     Dates: start: 200008
  4. TELZIR [Suspect]
     Indication: HIV INFECTION
     Route: 065
     Dates: start: 200502, end: 201010
  5. VIREAD [Suspect]
     Indication: HIV INFECTION
     Route: 065
     Dates: start: 200204
  6. VIRACEPT [Suspect]
     Indication: HIV INFECTION
     Route: 065
     Dates: start: 200204, end: 200502
  7. NORVIR [Suspect]
     Indication: HIV INFECTION
     Route: 065
     Dates: start: 200502, end: 200502
  8. PEGINTRON [Concomitant]
     Indication: HEPATITIS C
     Route: 065
     Dates: start: 200104
  9. RIBAVIRIN [Concomitant]
     Indication: HEPATITIS C
     Route: 065
     Dates: start: 200104
  10. METHADONE [Concomitant]
     Route: 065

REACTIONS (5)
  - Multiple-drug resistance [Unknown]
  - Lipodystrophy acquired [Recovering/Resolving]
  - Nausea [Recovering/Resolving]
  - Vulvar dysplasia [Unknown]
  - Anogenital dysplasia [Unknown]
